FAERS Safety Report 6483414-8 (Version None)
Quarter: 2009Q4

REPORT INFORMATION
  Report Type: 
  Country: None (occurrence: None)
  Receive Date: 20091209
  Receipt Date: 20091130
  Transmission Date: 20100525
  Serious: Yes (Other)
  Sender: FDA-Public Use
  Company Number: US-PFIZER INC-2009304763

PATIENT
  Sex: Female
  Weight: 63.492 kg

DRUGS (4)
  1. XALATAN [Suspect]
     Indication: GLAUCOMA
     Dosage: 0.005% UG/ML DROP
     Route: 047
  2. LEVOTHYROXINE [Concomitant]
     Indication: HYPOTHYROIDISM
     Dosage: 100 UG, UNK
     Route: 048
  3. WARFARIN SODIUM [Concomitant]
     Indication: HEART RATE ABNORMAL
     Dosage: 5 MG, UNK
     Route: 048
  4. LISINOPRIL [Concomitant]
     Indication: BLOOD PRESSURE
     Dosage: 5 MG, DAILY
     Route: 048

REACTIONS (3)
  - CARDIAC RESYNCHRONISATION THERAPY [None]
  - COUGH [None]
  - INCREASED UPPER AIRWAY SECRETION [None]
